FAERS Safety Report 9106696 (Version 2)
Quarter: 2013Q1

REPORT INFORMATION
  Report Type: Spontaneous
  Country: MX (occurrence: MX)
  Receive Date: 20130221
  Receipt Date: 20130307
  Transmission Date: 20140127
  Serious: Yes (Other)
  Sender: FDA-Public Use
  Company Number: PHHY2013MX015345

PATIENT
  Age: 78 Year
  Sex: Female

DRUGS (6)
  1. DIOVAN [Suspect]
     Indication: HYPERTENSION
     Dosage: 1 DF, DAILY (320 MG)
     Route: 048
     Dates: start: 20090919
  2. DIOVAN [Suspect]
     Dosage: 0.25 DF, A DAY
     Dates: start: 201301
  3. TEGRETOL [Suspect]
     Dosage: 4 DF, DAILY
     Dates: start: 201210
  4. PRAVASTATINE [Concomitant]
     Indication: BLOOD CHOLESTEROL ABNORMAL
     Dosage: 1 UKN, DAILY
     Dates: start: 201207
  5. METFORMIN [Concomitant]
     Indication: DIABETES MELLITUS
     Dosage: 0.5 DF, DAILY
     Dates: start: 201206
  6. CHLORTHALIDONE [Concomitant]
     Indication: BLOOD PRESSURE INCREASED
     Dosage: UNK UKN, UNK

REACTIONS (3)
  - Blood pressure fluctuation [Not Recovered/Not Resolved]
  - Headache [Not Recovered/Not Resolved]
  - Wrong technique in drug usage process [Unknown]
